FAERS Safety Report 9767467 (Version 4)
Quarter: 2014Q1

REPORT INFORMATION
  Report Type: Report from Study
  Country: US (occurrence: US)
  Receive Date: 20131217
  Receipt Date: 20140328
  Transmission Date: 20141002
  Serious: Yes (Hospitalization, Other)
  Sender: FDA-Public Use
  Company Number: PHEH2013US024909

PATIENT
  Age: 51 Year
  Sex: Male

DRUGS (1)
  1. GILENYA [Suspect]
     Indication: MULTIPLE SCLEROSIS
     Dosage: 0.5 MG, QD
     Route: 048
     Dates: start: 20131126

REACTIONS (9)
  - Palpitations [Recovering/Resolving]
  - Musculoskeletal stiffness [Recovered/Resolved]
  - Dyspnoea [Recovering/Resolving]
  - Bursitis [Not Recovered/Not Resolved]
  - Tachycardia [Unknown]
  - Blood pressure increased [Recovered/Resolved]
  - Joint swelling [Unknown]
  - Arthralgia [Unknown]
  - White blood cell count increased [Unknown]
